FAERS Safety Report 8058184-2 (Version None)
Quarter: 2012Q1

REPORT INFORMATION
  Report Type: 
  Country: None (occurrence: None)
  Receive Date: 20120112
  Receipt Date: 20111227
  Transmission Date: 20120608
  Serious: Yes (Other)
  Sender: FDA-Public Use
  Company Number: 2011030377

PATIENT
  Sex: Female
  Weight: 87 kg

DRUGS (1)
  1. STIMATE [Suspect]
     Indication: VON WILLEBRAND'S DISEASE
     Dosage: (2 PUFFS X1, 1.5 MG/ML NASAL)
     Route: 045
     Dates: start: 20111109, end: 20111109

REACTIONS (10)
  - MALAISE [None]
  - CHEST DISCOMFORT [None]
  - CONFUSIONAL STATE [None]
  - BLOOD PRESSURE INCREASED [None]
  - ANXIETY [None]
  - LIP SWELLING [None]
  - FEELING ABNORMAL [None]
  - HEADACHE [None]
  - DIZZINESS [None]
  - THROAT TIGHTNESS [None]
